FAERS Safety Report 13505855 (Version 1)
Quarter: 2017Q2

REPORT INFORMATION
  Report Type: Spontaneous
  Country: US (occurrence: US)
  Receive Date: 20170502
  Receipt Date: 20170502
  Transmission Date: 20170830
  Serious: No
  Sender: FDA-Public Use
  Company Number: US-ROCHE-1416826

PATIENT
  Sex: Female

DRUGS (2)
  1. PIMECROLIMUS [Concomitant]
     Active Substance: PIMECROLIMUS
  2. AVASTIN [Suspect]
     Active Substance: BEVACIZUMAB
     Indication: PRODUCT USED FOR UNKNOWN INDICATION
     Route: 065

REACTIONS (3)
  - Muscle contusion [Unknown]
  - Fatigue [Unknown]
  - Myalgia [Unknown]
